FAERS Safety Report 5525836-5 (Version None)
Quarter: 2007Q4

REPORT INFORMATION
  Report Type: 
  Country: None (occurrence: None)
  Receive Date: 20071126
  Receipt Date: 20071115
  Transmission Date: 20080405
  Serious: Yes (Other)
  Sender: FDA-Public Use
  Company Number: US-PFIZER INC-2007097906

PATIENT
  Sex: Female
  Weight: 71.818 kg

DRUGS (8)
  1. CHANTIX [Suspect]
     Indication: SMOKING CESSATION THERAPY
  2. LIPITOR [Suspect]
     Indication: BLOOD CHOLESTEROL INCREASED
     Dates: start: 20070901, end: 20070901
  3. ZETIA [Concomitant]
     Indication: BLOOD CHOLESTEROL INCREASED
  4. VIVELLE [Concomitant]
     Indication: HORMONE REPLACEMENT THERAPY
  5. ECHINACEA [Concomitant]
  6. MELATONIN [Concomitant]
     Indication: SLEEP DISORDER
  7. VITAMIN D [Concomitant]
  8. CALCIUM [Concomitant]

REACTIONS (5)
  - BLOOD CHOLESTEROL INCREASED [None]
  - DYSGEUSIA [None]
  - MUSCULOSKELETAL PAIN [None]
  - NECK PAIN [None]
  - WEIGHT INCREASED [None]
